FAERS Safety Report 12567976 (Version 1)
Quarter: 2016Q3

REPORT INFORMATION
  Report Type: Spontaneous
  Country: US (occurrence: US)
  Receive Date: 20160718
  Receipt Date: 20160718
  Transmission Date: 20161109
  Serious: No
  Sender: FDA-Public Use
  Company Number: US-ASTELLAS-2016US012865

PATIENT
  Sex: Female

DRUGS (1)
  1. MYRBETRIQ [Suspect]
     Active Substance: MIRABEGRON
     Indication: POLLAKIURIA
     Route: 048
     Dates: start: 201603, end: 20160403

REACTIONS (8)
  - Heart rate decreased [Unknown]
  - Somnolence [Unknown]
  - Head discomfort [Unknown]
  - Blood pressure decreased [Unknown]
  - Anxiety [Unknown]
  - Hypokinesia [Unknown]
  - Thinking abnormal [Unknown]
  - Fatigue [Unknown]
